FAERS Safety Report 8168912-3 (Version None)
Quarter: 2012Q1

REPORT INFORMATION
  Report Type: 
  Country: None (occurrence: None)
  Receive Date: 20120227
  Receipt Date: 20120215
  Transmission Date: 20120608
  Serious: Yes (Hospitalization)
  Sender: FDA-Public Use
  Company Number: US-ELI_LILLY_AND_COMPANY-US201110004665

PATIENT
  Sex: Female

DRUGS (49)
  1. FORTEO [Suspect]
     Indication: OSTEOPOROSIS
     Dosage: 20 UG, QD
     Dates: start: 20110101, end: 20110926
  2. FORTEO [Suspect]
     Dosage: 20 UG, QD
  3. OXYBUTYNIN [Concomitant]
  4. LYRICA [Concomitant]
     Dosage: 100 MG, TID
  5. IRON [Concomitant]
  6. VITAMIN D [Concomitant]
  7. ADVAIR DISKUS 100/50 [Concomitant]
  8. ISOPTO HOMATROPINE [Concomitant]
  9. METOPROLOL SUCCINATE [Concomitant]
  10. CYMBALTA [Concomitant]
     Dosage: 60 MG, BID
  11. LEVOTHYROXINE SODIUM [Concomitant]
  12. VITAMIN D [Concomitant]
  13. MUCINEX [Concomitant]
  14. CLARITIN [Concomitant]
  15. MULTIPLE VITAMIN [Concomitant]
  16. PRILOSEC [Concomitant]
  17. WELCHOL [Concomitant]
  18. BENZONATATE [Concomitant]
  19. FORTEO [Suspect]
     Dosage: 20 UG, QD
     Dates: end: 20111104
  20. FORTEO [Suspect]
     Dosage: 20 UG, QD
  21. DITROPAN [Concomitant]
  22. TOPROL-XL [Concomitant]
  23. CALCIUM [Concomitant]
  24. FOLIC ACID [Concomitant]
  25. FLEXERIL [Concomitant]
     Dosage: 5 MG, BID
  26. DUONEB [Concomitant]
     Indication: DYSPNOEA
  27. NORCO [Concomitant]
  28. FORTEO [Suspect]
     Dosage: 20 UG, QD
  29. SOMA [Concomitant]
  30. REQUIP [Concomitant]
     Indication: RESTLESS LEGS SYNDROME
  31. FENTANYL [Concomitant]
     Dosage: 25 MG, UNK
  32. ANALGESICS [Concomitant]
     Indication: PAIN
     Dosage: UNK, UNKNOWN
  33. ACETAMINOPHEN [Concomitant]
  34. FORTEO [Suspect]
     Dosage: 20 UG, QD
  35. METHOTREXATE [Concomitant]
     Dosage: 5 MG, 2/W
  36. ATROVENT [Concomitant]
  37. NIFEREX-150 FORTE [Concomitant]
  38. LOSARTAN POTASSIUM [Concomitant]
     Indication: BLOOD PRESSURE
  39. NORVASC [Concomitant]
  40. HYDROCODONE [Concomitant]
  41. NEXIUM [Concomitant]
  42. PREDNISONE [Concomitant]
     Dosage: 5 MG, BID
  43. ANALGESICS [Concomitant]
     Dosage: UNK, QD
  44. OS-CAL 500 + D [Concomitant]
  45. VALTREX [Concomitant]
  46. MULTI-VITAMIN [Concomitant]
  47. ASPIRIN [Concomitant]
     Dosage: 81 MG, QD
  48. SYNTHROID [Concomitant]
  49. VITAMIN B-12 [Concomitant]

REACTIONS (24)
  - HAEMORRHAGE [None]
  - VOMITING [None]
  - MENTAL STATUS CHANGES [None]
  - HYPERTENSION [None]
  - FLATULENCE [None]
  - DIARRHOEA [None]
  - GASTROINTESTINAL DISORDER [None]
  - HOSPITALISATION [None]
  - UNRESPONSIVE TO STIMULI [None]
  - DISCOMFORT [None]
  - COUGH [None]
  - DYSPNOEA [None]
  - ASTHENIA [None]
  - DRY MOUTH [None]
  - BACK PAIN [None]
  - CONSTIPATION [None]
  - CHEST PAIN [None]
  - MALAISE [None]
  - OEDEMA PERIPHERAL [None]
  - HIATUS HERNIA [None]
  - PAIN [None]
  - HYPOPHAGIA [None]
  - AGGRESSION [None]
  - DEHYDRATION [None]
